FAERS Safety Report 4641285-6 (Version None)
Quarter: 2005Q2

REPORT INFORMATION
  Report Type: 
  Country: None (occurrence: None)
  Receive Date: 20050420
  Receipt Date: 20050420
  Transmission Date: 20051028
  Serious: Yes (Hospitalization, Other)
  Sender: FDA-Public Use
  Company Number: None

PATIENT

DRUGS (2)
  1. VICODIN [Suspect]
     Indication: CANCER PAIN
     Dosage: ONE Q 4 HR PRN PAIN
  2. MORPHINE [Suspect]
     Dosage: ONE BID FOR PAIN

REACTIONS (5)
  - DEHYDRATION [None]
  - NAUSEA [None]
  - PAIN [None]
  - SYNCOPE [None]
  - VOMITING [None]
